FAERS Safety Report 15664916 (Version 1)
Quarter: 2018Q4

REPORT INFORMATION
  Report Type: Spontaneous
  Country: US (occurrence: US)
  Receive Date: 20181128
  Receipt Date: 20181128
  Transmission Date: 20190205
  Serious: No
  Sender: FDA-Public Use
  Company Number: None

PATIENT
  Age: 41 Year
  Sex: Female
  Weight: 94.5 kg

DRUGS (6)
  1. CYTOMEL [Concomitant]
     Active Substance: LIOTHYRONINE SODIUM
  2. TRAZODONE [Suspect]
     Active Substance: TRAZODONE HYDROCHLORIDE
     Indication: DEPRESSION
     Dosage: ?          QUANTITY:90 TABLET(S);?
     Route: 048
     Dates: start: 20181026, end: 20181126
  3. MULTI-VITAMINS [Concomitant]
  4. SINTHROID [Concomitant]
  5. ZOLOFT [Concomitant]
     Active Substance: SERTRALINE HYDROCHLORIDE
  6. TRZADONE [Concomitant]

REACTIONS (5)
  - Product substitution issue [None]
  - Rash [None]
  - Rash generalised [None]
  - Therapeutic response unexpected [None]
  - Insomnia [None]

NARRATIVE: CASE EVENT DATE: 20181026
